FAERS Safety Report 20616803 (Version 1)
Quarter: 2022Q1

REPORT INFORMATION
  Report Type: Spontaneous
  Country: US (occurrence: None)
  Receive Date: 20220321
  Receipt Date: 20220321
  Transmission Date: 20220423
  Serious: Yes (Other)
  Sender: FDA-Public Use
  Company Number: None

PATIENT
  Sex: Male

DRUGS (2)
  1. SPRYCEL [Suspect]
     Active Substance: DASATINIB
     Indication: Subdural haemorrhage
     Dosage: FREQUENCY : DAILY;?
     Route: 048
     Dates: start: 20210618
  2. SPRYCEL [Concomitant]
     Active Substance: DASATINIB
     Route: 048
     Dates: start: 20210618

REACTIONS (1)
  - Metastases to central nervous system [None]
